FAERS Safety Report 7984068-1 (Version None)
Quarter: 2011Q4

REPORT INFORMATION
  Report Type: 
  Country: None (occurrence: None)
  Receive Date: 20111216
  Receipt Date: 20111208
  Transmission Date: 20120403
  Serious: Yes (Other)
  Sender: FDA-Public Use
  Company Number: HU-PFIZER INC-2011301798

PATIENT
  Age: 57 Year
  Sex: Female
  Weight: 116 kg

DRUGS (15)
  1. LYRICA [Interacting]
     Dosage: 150 MG, 2X/DAY
  2. FUROSEMIDE [Concomitant]
     Dosage: 20 MG, UNK
  3. LYRICA [Interacting]
     Dosage: 1X150 AND 1X75 MG DAILY
  4. COAXIL [Concomitant]
     Dosage: UNK
  5. LEGALON [Concomitant]
     Dosage: ^140MG, 2X1^
  6. MEMORIL [Concomitant]
     Dosage: ^800 MG, 2X1^
  7. CONDROSULF [Concomitant]
     Dosage: 800 MG, UNK
  8. LYRICA [Interacting]
     Dosage: 75 MG, 2X/DAY
  9. CARDILOPIN [Concomitant]
     Dosage: 5 MG, UNK
  10. DOXILEK [Concomitant]
     Dosage: ^500MG, 2X1^
  11. PANANGIN [Concomitant]
     Dosage: UNK
  12. LYRICA [Suspect]
     Indication: NEURALGIA
     Dosage: 75 MG, 1X/DAY
     Dates: start: 20060101
  13. TALLITON [Concomitant]
     Dosage: ^12.5MG 2X1^
  14. ENALAPRIL MALEATE AND HYDROCHLOROTHIAZIDE [Concomitant]
     Dosage: ^20MG 2X1^
  15. OCUVITE LUTEIN [Concomitant]
     Dosage: ^1X1^

REACTIONS (2)
  - POTENTIATING DRUG INTERACTION [None]
  - STUPOR [None]
